FAERS Safety Report 8567341-8 (Version None)
Quarter: 2012Q3

REPORT INFORMATION
  Report Type: 
  Country: None (occurrence: None)
  Receive Date: 20120803
  Receipt Date: 20110916
  Transmission Date: 20120928
  Serious: No
  Sender: FDA-Public Use
  Company Number: US-ABBOTT-11P-163-0855372-00

PATIENT
  Sex: Male
  Weight: 112.59 kg

DRUGS (2)
  1. LOVAZA [Concomitant]
     Indication: PRODUCT USED FOR UNKNOWN INDICATION
  2. NIASPAN [Suspect]
     Indication: HIGH DENSITY LIPOPROTEIN DECREASED
     Dosage: AT HOUR OF SLEEP
     Route: 048
     Dates: start: 20110801, end: 20110901

REACTIONS (1)
  - PARAESTHESIA [None]
